FAERS Safety Report 8409871-5 (Version None)
Quarter: 2012Q2

REPORT INFORMATION
  Report Type: 
  Country: None (occurrence: None)
  Receive Date: 20120605
  Receipt Date: 20120530
  Transmission Date: 20120825
  Serious: No
  Sender: FDA-Public Use
  Company Number: US-PFIZER INC-2012114098

PATIENT
  Age: 96 Year
  Sex: Female
  Weight: 81.6 kg

DRUGS (1)
  1. LYRICA [Suspect]
     Indication: HERPES ZOSTER
     Dosage: 100 MG, 2X/DAY

REACTIONS (4)
  - VISUAL IMPAIRMENT [None]
  - DRY MOUTH [None]
  - DIZZINESS [None]
  - ABDOMINAL PAIN [None]
